FAERS Safety Report 5317051-5 (Version None)
Quarter: 2007Q2

REPORT INFORMATION
  Report Type: 
  Country: None (occurrence: None)
  Receive Date: 20070504
  Receipt Date: 20070420
  Transmission Date: 20071010
  Serious: Yes (Hospitalization)
  Sender: FDA-Public Use
  Company Number: JP-ROCHE-430663

PATIENT
  Age: 8 Year
  Sex: Male
  Weight: 26 kg

DRUGS (7)
  1. TAMIFLU [Suspect]
     Dosage: FORM:DRY SYRUP
     Route: 048
     Dates: start: 20051225, end: 20051225
  2. TAMIFLU [Suspect]
     Dosage: FORM:DRY SYRUP
     Route: 048
     Dates: start: 20051226, end: 20051228
  3. TAMIFLU [Suspect]
     Dosage: FORM:DRY SYRUP
     Route: 048
     Dates: start: 20051229
  4. MUCODYNE [Concomitant]
     Route: 048
     Dates: start: 20051225, end: 20051228
  5. ASVERIN [Concomitant]
     Route: 048
     Dates: start: 20051225, end: 20051228
  6. SOLITA-T1 [Concomitant]
     Route: 042
     Dates: start: 20051225, end: 20051225
  7. GENERIC UNKNOWN [Concomitant]
     Dosage: REPORTED AS: VEEN-G3.
     Route: 042
     Dates: start: 20051225, end: 20051227

REACTIONS (1)
  - ABNORMAL BEHAVIOUR [None]
